FAERS Safety Report 21196253 (Version 3)
Quarter: 2022Q3

REPORT INFORMATION
  Report Type: Report from Study
  Country: US (occurrence: US)
  Receive Date: 20220810
  Receipt Date: 20220922
  Transmission Date: 20221027
  Serious: Yes (Other)
  Sender: FDA-Public Use
  Company Number: US-SA-SAC20220809002150

PATIENT
  Age: 48 Year
  Sex: Female

DRUGS (2)
  1. DUPIXENT [Suspect]
     Active Substance: DUPILUMAB
     Indication: Dermatitis atopic
     Dosage: 600 MG, 1X
  2. DUPIXENT [Suspect]
     Active Substance: DUPILUMAB
     Dosage: 300 MG, QOW
     Route: 058
     Dates: start: 201710

REACTIONS (9)
  - Glaucoma [Unknown]
  - Eyelid ptosis [Unknown]
  - Post procedural complication [Unknown]
  - Eye infection [Unknown]
  - Corneal transplant [Unknown]
  - Dermatitis atopic [Unknown]
  - Eye operation [Unknown]
  - Corneal transplant [Unknown]
  - Visual impairment [Unknown]

NARRATIVE: CASE EVENT DATE: 20180101
